FAERS Safety Report 10653258 (Version 2)
Quarter: 2015Q1

REPORT INFORMATION
  Report Type: Spontaneous
  Country: DE (occurrence: DE)
  Receive Date: 20141215
  Receipt Date: 20150113
  Transmission Date: 20150720
  Serious: Yes (Hospitalization, Other)
  Sender: FDA-Public Use
  Company Number: DE-SA-2014SA170879

PATIENT
  Age: 23 Year
  Sex: Female

DRUGS (4)
  1. ACICLOVIR [Concomitant]
     Active Substance: ACYCLOVIR
     Indication: PROPHYLAXIS
     Route: 048
     Dates: end: 20141202
  2. LEMTRADA [Suspect]
     Active Substance: ALEMTUZUMAB
     Indication: MULTIPLE SCLEROSIS
     Route: 041
     Dates: start: 20141027, end: 20141101
  3. AMOXICILLIN/CLAVULANIC ACID [Concomitant]
     Indication: INFECTION
     Dates: start: 20141205, end: 20141211
  4. PYRALVEX [Concomitant]
     Indication: MOUTH ULCERATION
     Route: 061

REACTIONS (3)
  - Pancytopenia [Recovering/Resolving]
  - Influenza like illness [Recovering/Resolving]
  - Pyrexia [Recovering/Resolving]

NARRATIVE: CASE EVENT DATE: 20141205
